FAERS Safety Report 17447137 (Version 1)
Quarter: 2020Q1

REPORT INFORMATION
  Report Type: Spontaneous
  Country: SE (occurrence: SE)
  Receive Date: 20200221
  Receipt Date: 20200221
  Transmission Date: 20200409
  Serious: Yes (Other)
  Sender: FDA-Public Use
  Company Number: SE-BAYER-2020-025434

PATIENT
  Age: 20 Year
  Sex: Female
  Weight: 55 kg

DRUGS (1)
  1. YASMIN [Suspect]
     Active Substance: DROSPIRENONE\ETHINYL ESTRADIOL
     Route: 048
     Dates: start: 20170501, end: 20170526

REACTIONS (3)
  - Depression [Recovered/Resolved with Sequelae]
  - Breast enlargement [Recovered/Resolved with Sequelae]
  - Breast pain [Recovered/Resolved with Sequelae]

NARRATIVE: CASE EVENT DATE: 201705
